FAERS Safety Report 16086720 (Version 1)
Quarter: 2019Q1

REPORT INFORMATION
  Report Type: Spontaneous
  Country: JP (occurrence: JP)
  Receive Date: 20190318
  Receipt Date: 20190318
  Transmission Date: 20190418
  Serious: Yes (Death, Hospitalization)
  Sender: FDA-Public Use
  Company Number: PHHY2019JP053526

PATIENT
  Age: 79 Year
  Sex: Female
  Weight: 48 kg

DRUGS (7)
  1. REVOLADE TAB [Suspect]
     Active Substance: ELTROMBOPAG
     Indication: APLASTIC ANAEMIA
     Dosage: 100 MG, UNK
     Route: 048
     Dates: start: 20180419, end: 20180604
  2. REVOLADE TAB [Suspect]
     Active Substance: ELTROMBOPAG
     Dosage: 175 MG, UNK
     Route: 048
     Dates: start: 20180712, end: 20180802
  3. FILGRASTIM [Suspect]
     Active Substance: FILGRASTIM
     Indication: APLASTIC ANAEMIA
     Dosage: 100 UG/M2, UNK (200 UG/M2, 0.5 ADMINISTRATION DAILY)
     Route: 058
     Dates: start: 20180419, end: 20180708
  4. CICLOSPORIN [Concomitant]
     Active Substance: CYCLOSPORINE
     Dosage: 175 MG, UNK
     Route: 048
     Dates: start: 20180712, end: 20180804
  5. DAIPHEN [Suspect]
     Active Substance: SULFAMETHOXAZOLE\TRIMETHOPRIM
     Indication: PRODUCT USED FOR UNKNOWN INDICATION
     Dosage: 4 DF, UNK
     Route: 048
     Dates: start: 20180704, end: 20180709
  6. FILGRASTIM [Suspect]
     Active Substance: FILGRASTIM
     Dosage: 200 UG/M2, QD
     Route: 058
     Dates: start: 20180709, end: 20180809
  7. CICLOSPORIN [Concomitant]
     Active Substance: CYCLOSPORINE
     Indication: APLASTIC ANAEMIA
     Dosage: 175 MG, UNK
     Route: 048
     Dates: start: 20180419, end: 20180604

REACTIONS (10)
  - Sepsis [Fatal]
  - White blood cell count decreased [Fatal]
  - Disease progression [Fatal]
  - C-reactive protein increased [Not Recovered/Not Resolved]
  - Aplastic anaemia [Fatal]
  - Aspartate aminotransferase increased [Recovered/Resolved]
  - Cellulitis [Fatal]
  - Device related infection [Recovering/Resolving]
  - Alanine aminotransferase increased [Recovered/Resolved]
  - Blood alkaline phosphatase increased [Recovered/Resolved]

NARRATIVE: CASE EVENT DATE: 20180521
